FAERS Safety Report 5125719-9 (Version None)
Quarter: 2006Q4

REPORT INFORMATION
  Report Type: 
  Country: None (occurrence: None)
  Receive Date: 20061012
  Receipt Date: 20060929
  Transmission Date: 20070319
  Serious: Yes (Other)
  Sender: FDA-Public Use
  Company Number: DE-JNJFOC-20060905315

PATIENT
  Age: 4 Decade
  Sex: Female

DRUGS (1)
  1. TOPAMAX [Suspect]
     Indication: MIGRAINE
     Dosage: INITIATED SINCE 2 MONTHS
     Route: 048

REACTIONS (1)
  - DERMAL CYST [None]
